FAERS Safety Report 22027870 (Version 1)
Quarter: 2023Q1

REPORT INFORMATION
  Report Type: Spontaneous
  Country: US (occurrence: None)
  Receive Date: 20230222
  Receipt Date: 20230222
  Transmission Date: 20230418
  Serious: Yes (unspecified)
  Sender: FDA-Public Use
  Company Number: None

PATIENT
  Age: 60 Year
  Sex: Female
  Weight: 83.91 kg

DRUGS (9)
  1. ARTIFICIAL TEARS LUBRICANT EYE DROPS (CARBOXYMETHYLCELLULOSE SODIUM) [Suspect]
     Active Substance: CARBOXYMETHYLCELLULOSE SODIUM
     Indication: Dry eye
     Dosage: FREQUENCY : AS NEEDED;?
     Route: 031
     Dates: start: 20220709, end: 20220720
  2. VITAMIN D [Concomitant]
     Active Substance: VITAMIN D NOS
  3. ZINC [Concomitant]
     Active Substance: ZINC
  4. HERBALS [Concomitant]
     Active Substance: HERBALS
  5. HERBALS\TURMERIC [Concomitant]
     Active Substance: HERBALS\TURMERIC
  6. FLAXSEED [Concomitant]
     Active Substance: FLAX SEED
  7. COLLAGEN FOR JOINT HEALTH [Concomitant]
  8. COENZYME Q10 [Concomitant]
     Active Substance: DIETARY SUPPLEMENT\UBIDECARENONE
  9. GARLIC [Concomitant]
     Active Substance: GARLIC

REACTIONS (9)
  - Ocular hyperaemia [None]
  - Eye inflammation [None]
  - Dry eye [None]
  - Eye infection [None]
  - Eye pain [None]
  - Hypersensitivity [None]
  - Product contamination microbial [None]
  - Foreign body sensation in eyes [None]
  - Eye irritation [None]

NARRATIVE: CASE EVENT DATE: 20220709
